FAERS Safety Report 22535385 (Version 1)
Quarter: 2023Q2

REPORT INFORMATION
  Report Type: Spontaneous
  Country: IN (occurrence: IN)
  Receive Date: 20230608
  Receipt Date: 20230608
  Transmission Date: 20230722
  Serious: Yes (Other)
  Sender: FDA-Public Use
  Company Number: IN-PFIZER INC-PV202300098326

PATIENT
  Age: 11 Year
  Sex: Female
  Weight: 17.7 kg

DRUGS (1)
  1. METHYLPREDNISOLONE SODIUM SUCCINATE [Suspect]
     Active Substance: METHYLPREDNISOLONE SODIUM SUCCINATE
     Indication: Juvenile idiopathic arthritis
     Dosage: 500 MG (28.25 MG/KG)
     Route: 042

REACTIONS (1)
  - Sinus bradycardia [Recovered/Resolved]
